FAERS Safety Report 12946758 (Version 1)
Quarter: 2016Q4

REPORT INFORMATION
  Report Type: Spontaneous
  Country: FR (occurrence: FR)
  Receive Date: 20161116
  Receipt Date: 20161116
  Transmission Date: 20170207
  Serious: Yes (Hospitalization, Other)
  Sender: FDA-Public Use
  Company Number: FR-AMGEN-FRASP2016158397

PATIENT
  Age: 91 Year
  Sex: Female

DRUGS (17)
  1. ARANESP [Suspect]
     Active Substance: DARBEPOETIN ALFA
     Indication: ANAEMIA
     Dosage: 50 MUG, (5714 MCG) Q2WK
     Route: 058
     Dates: start: 20160707
  2. MOVICOL [Concomitant]
     Active Substance: POLYETHYLENE GLYCOL 3350\POTASSIUM CHLORIDE\SODIUM BICARBONATE\SODIUM CHLORIDE
     Dosage: 1 SACHET IN THE MORNING
  3. CORDARONE [Concomitant]
     Active Substance: AMIODARONE HYDROCHLORIDE
     Dosage: 200 MG, QD (1 TABLET IN THE MORNING)
  4. ATORVASTATIN [Concomitant]
     Active Substance: ATORVASTATIN
     Dosage: 80 MG, QD (1 TABLET IN THE EVENING)
  5. LEVOTHYROX [Concomitant]
     Active Substance: LEVOTHYROXINE
     Dosage: 25 MUG, (? TABLET IN THE MORNING)
  6. NEBIVOLOL. [Concomitant]
     Active Substance: NEBIVOLOL
     Dosage: 5 MG, (M TABLET LUNCHTIME AND EVENING)
  7. HYPERIUM [Concomitant]
     Active Substance: RILMENIDINE PHOSPHATE
     Dosage: 1 MG, QD (1 TABLET IN THE EVENING)
  8. LYRICA [Concomitant]
     Active Substance: PREGABALIN
     Dosage: 75 MG, QD, (1 CAPSULE IN THE EVENING)
  9. LUMIGAN [Concomitant]
     Active Substance: BIMATOPROST
     Dosage: 1 DROP IN THE MORNING
  10. ARANESP [Suspect]
     Active Substance: DARBEPOETIN ALFA
     Dosage: 80 MUG, UNK
     Route: 065
  11. KARDEGIC [Concomitant]
     Active Substance: ASPIRIN LYSINE
     Dosage: 75 MG, (1 SACHET AT LUNCHTIME)
  12. AMLODIPINE [Concomitant]
     Active Substance: AMLODIPINE BESYLATE
     Dosage: 10 MG, QD (1 CAPSULE IN THE MORNING)
  13. COAPROVEL [Concomitant]
     Active Substance: HYDROCHLOROTHIAZIDE\IRBESARTAN
     Dosage: 300/12.5 MG (IRBESATAN 300 MG + HYDROCHLOROTHIAZIDE 12.5 MG): 1 TABLET IN THE MORNING
  14. LANTUS [Concomitant]
     Active Substance: INSULIN GLARGINE
     Dosage: 26 UNIT, (IN THE MORNING)
  15. ALPRAZOLAM. [Concomitant]
     Active Substance: ALPRAZOLAM
     Dosage: 0.25 MG, (M TABLET IN THE MORNING AND 1 TABLET IN THE EVENING)
  16. CORVASAL [Concomitant]
     Active Substance: LINSIDOMINE
     Dosage: 4 MG, TID, (1 TABLET IN THE MORNING, LUNCHTIME AND EVENING)
  17. UVEDOSE [Concomitant]
     Active Substance: CHOLECALCIFEROL
     Dosage: 1 VIAL EVERY 2 WEEKS

REACTIONS (1)
  - Thrombophlebitis [Unknown]

NARRATIVE: CASE EVENT DATE: 20160816
